FAERS Safety Report 8418220 (Version 2)
Quarter: 2012Q4

REPORT INFORMATION
  Report Type: 
  Country: US (occurrence: US)
  Receive Date: 20120221
  Receipt Date: 20121012
  Transmission Date: 20130627
  Serious: Yes (Hospitalization)
  Sender: FDA-Public Use
  Company Number: US-US-EMD SERONO, INC.-7113002

PATIENT
  Sex: Female

DRUGS (6)
  1. REBIF [Suspect]
     Indication: MULTIPLE SCLEROSIS
     Route: 058
     Dates: start: 20111212, end: 20120109
  2. ATENOLOL [Concomitant]
     Indication: HYPERTENSION
  3. PROZAC [Concomitant]
     Indication: DEPRESSION
  4. LOVAZA [Concomitant]
     Indication: HYPERCHOLESTEROLAEMIA
  5. VITAMIN D [Concomitant]
     Indication: VITAMIN SUPPLEMENTATION
  6. MULTIVITAMIN [Concomitant]
     Indication: VITAMIN SUPPLEMENTATION

REACTIONS (2)
  - Large intestine polyp [Recovered/Resolved]
  - Anaemia [Recovered/Resolved]
